FAERS Safety Report 4695602-1 (Version None)
Quarter: 2005Q2

REPORT INFORMATION
  Report Type: 
  Country: None (occurrence: None)
  Receive Date: 20050621
  Receipt Date: 20050608
  Transmission Date: 20051028
  Serious: Yes (Other)
  Sender: FDA-Public Use
  Company Number: PHBS2005BR08109

PATIENT
  Age: 14 Year
  Sex: Female
  Weight: 64 kg

DRUGS (1)
  1. CATAFLAM [Suspect]
     Indication: THROAT IRRITATION
     Dosage: 50 MG, BID
     Route: 048
     Dates: start: 20050515, end: 20050518

REACTIONS (2)
  - HAEMOGLOBIN URINE PRESENT [None]
  - PROTEIN URINE [None]
